FAERS Safety Report 9743662 (Version 1)
Quarter: 2013Q4

REPORT INFORMATION
  Report Type: Spontaneous
  Country: US (occurrence: US)
  Receive Date: 20131210
  Receipt Date: 20131210
  Transmission Date: 20140711
  Serious: No
  Sender: FDA-Public Use
  Company Number: US-BIOGENIDEC-2013BI093486

PATIENT
  Sex: Female

DRUGS (6)
  1. TECFIDERA [Suspect]
     Indication: MULTIPLE SCLEROSIS
     Route: 048
     Dates: start: 20130821
  2. CALCIUM 500 + D [Concomitant]
  3. B COMPLEX [Concomitant]
  4. LISINOPRIL [Concomitant]
  5. PROVIGIL [Concomitant]
  6. OMEPRAZOLE [Concomitant]

REACTIONS (2)
  - Abdominal discomfort [Unknown]
  - Nausea [Unknown]
